FAERS Safety Report 13807806 (Version 1)
Quarter: 2017Q3

REPORT INFORMATION
  Report Type: Spontaneous
  Country: US (occurrence: US)
  Receive Date: 20170728
  Receipt Date: 20170728
  Transmission Date: 20171127
  Serious: No
  Sender: FDA-Public Use
  Company Number: US-AKRIMAX-TIR-2017-0494

PATIENT
  Age: 73 Year
  Sex: Female
  Weight: 108.51 kg

DRUGS (2)
  1. TIROSINT [Suspect]
     Active Substance: LEVOTHYROXINE SODIUM
     Indication: HYPOTHYROIDISM
     Dosage: ONE 100MCG CAPSULE DAILY
     Route: 048
     Dates: start: 2015
  2. TOPROL XL [Concomitant]
     Active Substance: METOPROLOL SUCCINATE
     Indication: HYPERTENSION

REACTIONS (6)
  - Palpitations [Unknown]
  - Blood pressure increased [Unknown]
  - Tachycardia [Recovered/Resolved]
  - Asthenia [Unknown]
  - Dyspnoea [Unknown]
  - Pyrexia [Unknown]

NARRATIVE: CASE EVENT DATE: 201704
